FAERS Safety Report 6035655-1 (Version None)
Quarter: 2009Q1

REPORT INFORMATION
  Report Type: 
  Country: None (occurrence: None)
  Receive Date: 20090113
  Receipt Date: 20090109
  Transmission Date: 20090719
  Serious: Yes (Life-Threatening)
  Sender: FDA-Public Use
  Company Number: PHHY2008IT31455

PATIENT
  Sex: Male

DRUGS (1)
  1. VOLTADVANCE [Suspect]
     Indication: PAIN
     Dosage: 25 MG AS NEEDED
     Route: 048
     Dates: start: 20081129, end: 20081129

REACTIONS (4)
  - ANAPHYLACTIC SHOCK [None]
  - CARDIAC ARREST [None]
  - CARDIOVERSION [None]
  - VENTRICULAR FIBRILLATION [None]
